FAERS Safety Report 8181067-4 (Version None)
Quarter: 2012Q1

REPORT INFORMATION
  Report Type: 
  Country: None (occurrence: None)
  Receive Date: 20120302
  Receipt Date: 20120224
  Transmission Date: 20120608
  Serious: Yes (Other)
  Sender: FDA-Public Use
  Company Number: FR-UCBSA-051752

PATIENT
  Age: 58 Year
  Sex: Male
  Weight: 72 kg

DRUGS (1)
  1. KEPPRA [Suspect]
     Indication: EPILEPSY
     Route: 048
     Dates: start: 20100809

REACTIONS (1)
  - VISUAL FIELD DEFECT [None]
